FAERS Safety Report 5675564-0 (Version None)
Quarter: 2008Q1

REPORT INFORMATION
  Report Type: 
  Country: None (occurrence: None)
  Receive Date: 20080321
  Receipt Date: 20080313
  Transmission Date: 20080703
  Serious: Yes (Hospitalization, Other)
  Sender: FDA-Public Use
  Company Number: US-JNJFOC-20080302292

PATIENT
  Age: 27 Year
  Sex: Male

DRUGS (20)
  1. PREZISTA [Suspect]
     Indication: HIV INFECTION
     Route: 048
  2. MK-0518 [Suspect]
     Indication: HIV INFECTION
     Route: 048
  3. TRIZIVIR [Suspect]
     Indication: HIV INFECTION
     Route: 065
  4. NORVIR [Suspect]
     Indication: HIV INFECTION
     Route: 065
  5. ZIDOVUDINE [Suspect]
     Indication: HIV INFECTION
     Dosage: PERMANENT STOP
     Route: 048
  6. LAMIVUDINE [Suspect]
     Indication: HIV INFECTION
     Route: 065
  7. ABACAVIR SULFATE [Suspect]
     Indication: HIV INFECTION
     Route: 065
  8. MAGNESIUM OXIDE [Concomitant]
     Route: 065
  9. ALENDRONATE SODIUM [Concomitant]
     Route: 065
  10. AMILORIDE HYDROCHLORIDE [Concomitant]
     Route: 065
  11. ASPIRIN [Concomitant]
     Route: 065
  12. AZITHROMYCIN [Concomitant]
     Route: 065
  13. CALCIUM CARBONATE [Concomitant]
     Route: 065
  14. DAPSONE [Concomitant]
     Route: 065
  15. POTASSIUM CHLORIDE [Concomitant]
     Route: 065
  16. PHENERGAN HCL [Concomitant]
     Route: 065
  17. ZOLOFT [Concomitant]
     Route: 065
  18. TESTOSTERONE [Concomitant]
     Route: 065
  19. VITAMIN D [Concomitant]
     Route: 065
  20. ZOLPIDEM TARTRATE [Concomitant]
     Route: 065

REACTIONS (2)
  - ANAEMIA [None]
  - IMMUNE RECONSTITUTION SYNDROME [None]
